FAERS Safety Report 8845375 (Version 1)
Quarter: 2012Q4

REPORT INFORMATION
  Report Type: Spontaneous
  Country: US (occurrence: None)
  Receive Date: 20121015
  Receipt Date: 20121015
  Transmission Date: 20130627
  Serious: Yes (Hospitalization, Other)
  Sender: FDA-Public Use
  Company Number: TPA2012A07578

PATIENT
  Age: 67 Year
  Sex: Female
  Weight: 72.58 kg

DRUGS (13)
  1. ACTOS (PIOGLITAZONE HYDROCHLORIDE) [Suspect]
     Indication: DIABETES
     Dosage: 30 mg, 1 in 1 hr, Per oral
     Route: 048
     Dates: start: 2002
  2. GLYBURIDE (GLIBENCLAMIDE) [Concomitant]
  3. REGLAN (METOCLOPRAMIDE) [Concomitant]
  4. PROTONIX (PANTOPRAZOLE SODIUM SESQUIHYDRATE) [Concomitant]
  5. RENVELA (SEVELAMER CARBONATE) (TABLETS) [Concomitant]
  6. LOVENOX (ENOXAPARIN SODIUM) [Concomitant]
  7. SYNTHROID (LEVOTHYROXINE SODIUM) [Concomitant]
  8. CARDIZEM CD (DILTIAZEM HYDROCHLORIDE) [Concomitant]
  9. PHOSLO (CALCIUM ACETATE) [Concomitant]
  10. CIPROFLOXIN (CIPROFLOXACIN) [Concomitant]
  11. CLONIDINE PATCH (CLONIDINE) [Concomitant]
  12. PERCOCET (PARACETAMOL, OXYCODONE HYDROCHLORIDE) [Concomitant]
  13. ULTRAM (TRAMADOL HYDROCHLORIDE) [Concomitant]

REACTIONS (7)
  - Leg amputation [None]
  - Device related infection [None]
  - Cerebrovascular accident [None]
  - Dialysis [None]
  - International normalised ratio increased [None]
  - Overdose [None]
  - Peripheral artery bypass [None]
